FAERS Safety Report 24882170 (Version 2)
Quarter: 2025Q1

REPORT INFORMATION
  Report Type: Report from Study
  Country: ZA (occurrence: ZA)
  Receive Date: 20250124
  Receipt Date: 20250131
  Transmission Date: 20250409
  Serious: Yes (Other)
  Sender: NOVARTIS
  Company Number: ZA-002147023-NVSC2025ZA010196

PATIENT
  Age: 68 Year
  Sex: Male

DRUGS (3)
  1. COSENTYX [Suspect]
     Active Substance: SECUKINUMAB
     Indication: Psoriatic arthropathy
     Route: 065
     Dates: start: 20241106
  2. COSENTYX [Suspect]
     Active Substance: SECUKINUMAB
     Dosage: 150 MG, QW (FOR 5 WEEKS THEN MONTHLY)
     Route: 058
  3. COSENTYX [Suspect]
     Active Substance: SECUKINUMAB
     Dosage: 150 MG, QMO
     Route: 058
     Dates: start: 202411

REACTIONS (7)
  - C-reactive protein increased [Unknown]
  - Blood creatinine increased [Unknown]
  - Synovitis [Recovered/Resolved]
  - Arthralgia [Unknown]
  - Ankle deformity [Unknown]
  - Osteoarthritis [Unknown]
  - Foot deformity [Unknown]

NARRATIVE: CASE EVENT DATE: 20250107
